FAERS Safety Report 4364781-8 (Version None)
Quarter: 2004Q2

REPORT INFORMATION
  Report Type: 
  Country: None (occurrence: None)
  Receive Date: 20040521
  Receipt Date: 20040514
  Transmission Date: 20050107
  Serious: Yes (Hospitalization)
  Sender: FDA-Public Use
  Company Number: 2004PK00866

PATIENT
  Age: 76 Year
  Sex: Female
  Weight: 68 kg

DRUGS (12)
  1. METOPROLOL SUCCINATE [Suspect]
     Indication: HYPERTENSION
     Dosage: 47.5 MG DAILY PO
     Route: 048
     Dates: start: 20020101
  2. ACTRAPID HUMAN [Suspect]
     Indication: DIABETES MELLITUS NON-INSULIN-DEPENDENT
     Dosage: 72 IU DAILY SQ
     Route: 058
     Dates: start: 20031101
  3. AMARYL [Suspect]
     Indication: DIABETES MELLITUS NON-INSULIN-DEPENDENT
     Dosage: 2 MG DAILY PO
     Route: 048
     Dates: start: 20031101
  4. DELIX [Suspect]
     Indication: HYPERTENSION
     Dosage: 5 MG DAILY PO
     Route: 048
     Dates: start: 20020101
  5. AQUAPHOR [Concomitant]
  6. DIGITOXIN TAB [Concomitant]
  7. FALITHROM [Concomitant]
  8. METHIZOL [Concomitant]
  9. NORVASC [Concomitant]
  10. PROTAPHAN HUMAN [Concomitant]
  11. SEREVENT [Concomitant]
  12. TORSEMIDE [Concomitant]

REACTIONS (3)
  - DRUG INTERACTION [None]
  - MARKEDLY REDUCED DIETARY INTAKE [None]
  - SHOCK HYPOGLYCAEMIC [None]
